FAERS Safety Report 16620340 (Version 1)
Quarter: 2019Q3

REPORT INFORMATION
  Report Type: Spontaneous
  Country: FR (occurrence: FR)
  Receive Date: 20190723
  Receipt Date: 20190723
  Transmission Date: 20191004
  Serious: Yes (Hospitalization)
  Sender: FDA-Public Use
  Company Number: FR-TEVA-2019-FR-1080658

PATIENT
  Age: 75 Year
  Sex: Male
  Weight: 80.5 kg

DRUGS (2)
  1. ENALAPRIL (MALEATE D^) [Suspect]
     Active Substance: ENALAPRIL MALEATE
     Indication: HYPERTENSION
     Dosage: 1 IN THE MORNING,1DOSAGE FORMS PER DAY
     Route: 048
     Dates: end: 20190607
  2. LASILIX RETARD 60 MG, G?LULE [Suspect]
     Active Substance: FUROSEMIDE
     Indication: HYPERTENSION
     Dosage: IN THE MORNING, 1DOSAGE FORMS PER DAY
     Route: 048
     Dates: end: 20190607

REACTIONS (1)
  - Acute kidney injury [Recovered/Resolved]

NARRATIVE: CASE EVENT DATE: 20190607
